FAERS Safety Report 8500161-9 (Version None)
Quarter: 2012Q3

REPORT INFORMATION
  Report Type: 
  Country: None (occurrence: None)
  Receive Date: 20120710
  Receipt Date: 20120705
  Transmission Date: 20120928
  Serious: Yes (Hospitalization, Other)
  Sender: FDA-Public Use
  Company Number: US-PFIZER INC-2011090750

PATIENT
  Sex: Female
  Weight: 61 kg

DRUGS (6)
  1. HYOSCYAMINE [Concomitant]
     Indication: ABDOMINAL DISCOMFORT
     Dosage: UNK
  2. AMITRIPTYLINE [Concomitant]
     Dosage: 50 MG, 1X/DAY
  3. CALAN [Suspect]
     Indication: MITRAL VALVE PROLAPSE
     Dosage: 120 MG, 1X/DAY
     Route: 048
  4. VERAPAMIL HCL [Suspect]
     Dosage: UNK
     Dates: end: 19960101
  5. SINGULAIR [Concomitant]
     Dosage: UNK
     Route: 048
  6. ROBAXIN [Concomitant]
     Dosage: 750 MG, UNK
     Route: 048

REACTIONS (3)
  - KNEE ARTHROPLASTY [None]
  - BLOOD PRESSURE DECREASED [None]
  - LOSS OF CONSCIOUSNESS [None]
